FAERS Safety Report 5618536-4 (Version None)
Quarter: 2008Q1

REPORT INFORMATION
  Report Type: 
  Country: None (occurrence: None)
  Receive Date: 20080204
  Receipt Date: 20080126
  Transmission Date: 20080703
  Serious: Yes (Death)
  Sender: FDA-Public Use
  Company Number: MEDI-0006008

PATIENT
  Age: 1 Month
  Sex: Male

DRUGS (2)
  1. SYNAGIS [Suspect]
     Dates: start: 20070918, end: 20070918
  2. IRON [Concomitant]

REACTIONS (2)
  - SKIN DISCOLOURATION [None]
  - SUDDEN DEATH [None]
